FAERS Safety Report 7935771-0 (Version None)
Quarter: 2011Q4

REPORT INFORMATION
  Report Type: 
  Country: None (occurrence: None)
  Receive Date: 20111121
  Receipt Date: 20111106
  Transmission Date: 20120403
  Serious: Yes (Death)
  Sender: FDA-Public Use
  Company Number: FK201102607

PATIENT
  Age: 55 Year
  Sex: Male

DRUGS (2)
  1. NEBUPENT [Suspect]
     Indication: PROPHYLAXIS
     Dosage: SEE IMAGE
     Route: 049
  2. BUDESONIDE [Concomitant]

REACTIONS (5)
  - SPEECH DISORDER [None]
  - CARDIO-RESPIRATORY ARREST [None]
  - HYPERHIDROSIS [None]
  - RIB FRACTURE [None]
  - PNEUMOTHORAX [None]
